FAERS Safety Report 13379839 (Version 1)
Quarter: 2017Q1

REPORT INFORMATION
  Report Type: Report from Study
  Country: CN (occurrence: CN)
  Receive Date: 20170328
  Receipt Date: 20170328
  Transmission Date: 20170429
  Serious: Yes (Other)
  Sender: FDA-Public Use
  Company Number: CN-ELI_LILLY_AND_COMPANY-CN201703007628

PATIENT
  Sex: Female
  Weight: 50 kg

DRUGS (4)
  1. INSULIN, LISPRO [Suspect]
     Active Substance: INSULIN LISPRO
     Dosage: 22 U, EACH EVENING
     Route: 058
     Dates: start: 201612
  2. INSULIN, LISPRO [Suspect]
     Active Substance: INSULIN LISPRO
     Dosage: 22 U, EACH EVENING
     Route: 058
  3. INSULIN, LISPRO [Suspect]
     Active Substance: INSULIN LISPRO
     Dosage: 24 U, EACH MORNING
     Route: 058
  4. INSULIN, LISPRO [Suspect]
     Active Substance: INSULIN LISPRO
     Indication: DIABETES MELLITUS
     Dosage: 24 U, EACH MORNING
     Route: 058
     Dates: start: 201612

REACTIONS (2)
  - Injection site pruritus [Not Recovered/Not Resolved]
  - Injection site mass [Not Recovered/Not Resolved]
